FAERS Safety Report 8599487-2 (Version None)
Quarter: 2012Q3

REPORT INFORMATION
  Report Type: 
  Country: None (occurrence: None)
  Receive Date: 20120816
  Receipt Date: 20120509
  Transmission Date: 20120928
  Serious: No
  Sender: FDA-Public Use
  Company Number: US-ALLERGAN-1206691US

PATIENT
  Age: 85 Year
  Sex: Female

DRUGS (3)
  1. PEPCID [Concomitant]
     Indication: DYSPEPSIA
  2. LASTACAFT [Suspect]
     Indication: VISION BLURRED
     Route: 047
  3. LASTACAFT [Suspect]
     Indication: SEASONAL ALLERGY

REACTIONS (1)
  - DRUG INEFFECTIVE [None]
